FAERS Safety Report 7729220-5 (Version None)
Quarter: 2011Q3

REPORT INFORMATION
  Report Type: 
  Country: None (occurrence: None)
  Receive Date: 20110906
  Receipt Date: 20110831
  Transmission Date: 20111222
  Serious: No
  Sender: FDA-Public Use
  Company Number: US-PFIZER INC-2011203340

PATIENT
  Sex: Male

DRUGS (1)
  1. LIPITOR [Suspect]
     Dosage: UNK
     Dates: end: 20110101

REACTIONS (4)
  - ARTHRALGIA [None]
  - HEPATIC ENZYME INCREASED [None]
  - OEDEMA PERIPHERAL [None]
  - JOINT SWELLING [None]
